FAERS Safety Report 25789006 (Version 1)
Quarter: 2025Q3

REPORT INFORMATION
  Report Type: Spontaneous
  Country: US (occurrence: US)
  Receive Date: 20250911
  Receipt Date: 20250911
  Transmission Date: 20251020
  Serious: Yes (Hospitalization)
  Sender: ABBVIE
  Company Number: US-ABBVIE-6451485

PATIENT
  Sex: Female

DRUGS (1)
  1. SKYRIZI [Suspect]
     Active Substance: RISANKIZUMAB-RZAA
     Indication: Psoriasis
     Route: 058
     Dates: start: 20250731

REACTIONS (3)
  - Renal failure [Unknown]
  - Diabetes mellitus [Unknown]
  - Blood pressure inadequately controlled [Unknown]

NARRATIVE: CASE EVENT DATE: 20250101
